FAERS Safety Report 18475681 (Version 1)
Quarter: 2020Q4

REPORT INFORMATION
  Report Type: Spontaneous
  Country: US (occurrence: US)
  Receive Date: 20201106
  Receipt Date: 20201106
  Transmission Date: 20210114
  Serious: No
  Sender: FDA-Public Use
  Company Number: US-TAKEDA-US201940991

PATIENT
  Sex: Male

DRUGS (7)
  1. GATTEX [Suspect]
     Active Substance: TEDUGLUTIDE\WATER
     Indication: SHORT-BOWEL SYNDROME
     Dosage: 0.35 UNK, 1X/DAY:QD
     Route: 058
     Dates: start: 20191111
  2. LOVENOX [LEVOFLOXACIN] [Concomitant]
     Active Substance: LEVOFLOXACIN
     Indication: PRODUCT USED FOR UNKNOWN INDICATION
  3. CLARITIN [CLARITHROMYCIN] [Concomitant]
     Active Substance: CLARITHROMYCIN
     Indication: PRODUCT USED FOR UNKNOWN INDICATION
  4. GATTEX [Suspect]
     Active Substance: TEDUGLUTIDE\WATER
     Indication: SHORT-BOWEL SYNDROME
     Dosage: 0.35 UNK, 1X/DAY:QD
     Route: 058
     Dates: start: 20191111
  5. GATTEX [Suspect]
     Active Substance: TEDUGLUTIDE\WATER
     Indication: SHORT-BOWEL SYNDROME
     Dosage: 0.35 UNK, 1X/DAY:QD
     Route: 058
     Dates: start: 20191111
  6. PAXIL [Concomitant]
     Active Substance: PAROXETINE HYDROCHLORIDE
     Indication: PRODUCT USED FOR UNKNOWN INDICATION
  7. GATTEX [Suspect]
     Active Substance: TEDUGLUTIDE\WATER
     Indication: SHORT-BOWEL SYNDROME
     Dosage: 0.35 UNK, 1X/DAY:QD
     Route: 058
     Dates: start: 20191111

REACTIONS (3)
  - Pruritus [Unknown]
  - Dyskinesia [Unknown]
  - Insomnia [Unknown]
